FAERS Safety Report 13761758 (Version 1)
Quarter: 2017Q3

REPORT INFORMATION
  Report Type: Spontaneous
  Country: FR (occurrence: FR)
  Receive Date: 20170718
  Receipt Date: 20170718
  Transmission Date: 20171127
  Serious: Yes (Death, Life-Threatening, Other)
  Sender: FDA-Public Use
  Company Number: FR-BAXTER-2017BAX027699

PATIENT
  Age: 80 Year
  Sex: Female

DRUGS (8)
  1. ZOMETA [Suspect]
     Active Substance: ZOLEDRONIC ACID
     Indication: METASTASIS
     Route: 065
     Dates: start: 20131015, end: 20140224
  2. ENDOXAN 1000 MG, POUDRE POUR SOLUTION INJECTABLE [Suspect]
     Active Substance: CYCLOPHOSPHAMIDE
     Dosage: FOURTH AND LAST CYCLE
     Route: 042
     Dates: start: 20130910, end: 20130910
  3. ENDOXAN 1000 MG, POUDRE POUR SOLUTION INJECTABLE [Suspect]
     Active Substance: CYCLOPHOSPHAMIDE
     Indication: NEOPLASM MALIGNANT
     Dosage: CYCLE 1, 2 AND 3
     Route: 042
     Dates: start: 20130709
  4. DOXORUBICIN TEVA [Suspect]
     Active Substance: DOXORUBICIN
     Dosage: FOURTH AND LAST CYCLE
     Route: 042
     Dates: start: 20130910, end: 20130910
  5. TAXOL [Suspect]
     Active Substance: PACLITAXEL
     Indication: METASTASIS
     Route: 065
     Dates: start: 20131015, end: 20140224
  6. DOXORUBICIN TEVA [Suspect]
     Active Substance: DOXORUBICIN
     Indication: NEOPLASM MALIGNANT
     Dosage: CYCLE 1, 2 AND 3
     Route: 042
     Dates: start: 20130709
  7. TAZOCILLINE [Suspect]
     Active Substance: PIPERACILLIN SODIUM\TAZOBACTAM SODIUM
     Indication: FEBRILE NEUTROPENIA
     Route: 065
     Dates: start: 201309
  8. AMIKLIN [Suspect]
     Active Substance: AMIKACIN SULFATE
     Indication: FEBRILE NEUTROPENIA
     Route: 065
     Dates: start: 201309

REACTIONS (17)
  - Muscular weakness [Unknown]
  - Death [Fatal]
  - Faecaloma [Unknown]
  - Fall [Unknown]
  - Respiratory disorder [Unknown]
  - Large intestine perforation [Unknown]
  - Escherichia infection [Unknown]
  - Ejection fraction decreased [Unknown]
  - Septic shock [Unknown]
  - Asthenia [Unknown]
  - Metastasis [Unknown]
  - General physical health deterioration [Unknown]
  - Femoral neck fracture [Unknown]
  - Febrile neutropenia [Unknown]
  - Peritonitis [Unknown]
  - Bronchitis [Unknown]
  - Condition aggravated [Unknown]

NARRATIVE: CASE EVENT DATE: 201307
